FAERS Safety Report 15706789 (Version 2)
Quarter: 2018Q4

REPORT INFORMATION
  Report Type: Report from Study
  Country: US (occurrence: US)
  Receive Date: 20181210
  Receipt Date: 20181223
  Transmission Date: 20190205
  Serious: Yes (Hospitalization)
  Sender: FDA-Public Use
  Company Number: US-ACTELION-A-NJ2018-174823

PATIENT
  Age: 42 Year
  Sex: Female
  Weight: 103.4 kg

DRUGS (5)
  1. VELETRI [Suspect]
     Active Substance: EPOPROSTENOL
     Dosage: 33 NG/KG, PER MIN
     Route: 042
  2. VELETRI [Suspect]
     Active Substance: EPOPROSTENOL
     Indication: PULMONARY ARTERIAL HYPERTENSION
     Dosage: 35 NG/KG, PER MIN
     Route: 042
  3. OPSUMIT [Suspect]
     Active Substance: MACITENTAN
     Indication: PULMONARY ARTERIAL HYPERTENSION
     Dosage: 10 MG, QD
     Route: 048
  4. VELETRI [Suspect]
     Active Substance: EPOPROSTENOL
     Dosage: 25 NG/KG, PER MIN
     Route: 042
  5. WARFARIN [Concomitant]
     Active Substance: WARFARIN

REACTIONS (16)
  - Nausea [Unknown]
  - Chest pain [Unknown]
  - Headache [Unknown]
  - Anxiety [Unknown]
  - Malaise [Unknown]
  - Cough [Unknown]
  - Nasal congestion [Unknown]
  - Hospitalisation [Unknown]
  - Migraine [Unknown]
  - Oropharyngeal pain [Unknown]
  - Nasopharyngitis [Unknown]
  - Dyspnoea [Unknown]
  - Device leakage [Unknown]
  - Viral infection [Unknown]
  - Sinusitis [Unknown]
  - Dizziness [Unknown]
